FAERS Safety Report 12847587 (Version 1)
Quarter: 2016Q4

REPORT INFORMATION
  Report Type: Spontaneous
  Country: FI (occurrence: FI)
  Receive Date: 20161014
  Receipt Date: 20161014
  Transmission Date: 20170207
  Serious: Yes (Other)
  Sender: FDA-Public Use
  Company Number: FI-BAYER-2016-192696

PATIENT
  Age: 13 Year
  Sex: Male

DRUGS (2)
  1. CIPROXIN [Suspect]
     Active Substance: CIPROFLOXACIN
     Indication: TULARAEMIA
  2. CIPROXIN [Suspect]
     Active Substance: CIPROFLOXACIN
     Indication: LYMPHADENECTOMY
     Dosage: UNK
     Dates: start: 20160927, end: 20161003

REACTIONS (4)
  - Infective tenosynovitis [None]
  - Tendon disorder [None]
  - Faeces discoloured [None]
  - Pain in extremity [None]

NARRATIVE: CASE EVENT DATE: 20160929
